FAERS Safety Report 8388684 (Version 2)
Quarter: 2012Q4

REPORT INFORMATION
  Report Type: Report from Study
  Country: IT (occurrence: IT)
  Receive Date: 20120203
  Receipt Date: 20121116
  Transmission Date: 20130627
  Serious: Yes (Death, Hospitalization)
  Sender: FDA-Public Use
  Company Number: IT-CELGENEUS-083-21880-12012115

PATIENT

DRUGS (2)
  1. REVLIMID [Suspect]
     Indication: MDS
     Dosage: 10 Milligram
     Route: 048
     Dates: start: 20100118, end: 20100208
  2. REVLIMID [Suspect]
     Route: 048
     Dates: end: 20100222

REACTIONS (2)
  - Acute myeloid leukaemia [Fatal]
  - Toxicity to various agents [Unknown]
